FAERS Safety Report 5319154-8 (Version None)
Quarter: 2007Q2

REPORT INFORMATION
  Report Type: 
  Country: None (occurrence: None)
  Receive Date: 20070208
  Receipt Date: 20060524
  Transmission Date: 20071010
  Serious: Yes (Hospitalization)
  Sender: FDA-Public Use
  Company Number: 20060524VANCO0190

PATIENT
  Age: 85 Year
  Sex: Female

DRUGS (3)
  1. VANCOMYCIN HCL [Suspect]
     Indication: CLOSTRIDIAL INFECTION
     Dosage: SEE IMAGE
     Route: 048
     Dates: end: 20060302
  2. VANCOMYCIN HCL [Suspect]
     Indication: CLOSTRIDIAL INFECTION
     Dosage: SEE IMAGE
     Route: 048
     Dates: start: 20060217
  3. ACETAMINOPHEN [Concomitant]

REACTIONS (2)
  - BLISTER [None]
  - DERMATITIS BULLOUS [None]
